FAERS Safety Report 7335335-6 (Version None)
Quarter: 2011Q1

REPORT INFORMATION
  Report Type: 
  Country: None (occurrence: None)
  Receive Date: 20110307
  Receipt Date: 20110228
  Transmission Date: 20110831
  Serious: Yes (Death)
  Sender: FDA-Public Use
  Company Number: KR-GENZYME-FLUD-1000800

PATIENT
  Age: 81 Year
  Sex: Male

DRUGS (2)
  1. FLUDARA [Suspect]
     Dosage: UNK
     Route: 065
  2. FLUDARA [Suspect]
     Indication: LYMPHOMA
     Dosage: UNK
     Route: 065

REACTIONS (1)
  - GASTRIC CANCER [None]
